FAERS Safety Report 19189762 (Version 4)
Quarter: 2021Q2

REPORT INFORMATION
  Report Type: Spontaneous
  Country: US (occurrence: US)
  Receive Date: 20210428
  Receipt Date: 20210614
  Transmission Date: 20210717
  Serious: Yes (Other)
  Sender: FDA-Public Use
  Company Number: US-AKCEA THERAPEUTICS, INC.-2021IS001203

PATIENT
  Age: 28 Year
  Sex: Male
  Weight: 58.14 kg

DRUGS (5)
  1. ISSD (INTEGRATED SYRINGE SAFETY DEVICE) [Suspect]
     Active Substance: DEVICE
  2. LAMICTAL [Concomitant]
     Active Substance: LAMOTRIGINE
     Route: 065
  3. TEGSEDI [Suspect]
     Active Substance: INOTERSEN SODIUM
     Indication: PRODUCT USED FOR UNKNOWN INDICATION
     Route: 065
     Dates: start: 20210309, end: 20210310
  4. KEPPRA [Concomitant]
     Active Substance: LEVETIRACETAM
     Route: 065
  5. PYRIDOSTIGMINE [Concomitant]
     Active Substance: PYRIDOSTIGMINE
     Route: 065

REACTIONS (6)
  - Adverse drug reaction [Recovered/Resolved]
  - Nausea [Unknown]
  - Ischaemia [Unknown]
  - Pain [Recovered/Resolved]
  - Chest pain [Unknown]
  - Myalgia [Recovered/Resolved]

NARRATIVE: CASE EVENT DATE: 20210310
